FAERS Safety Report 12890217 (Version 1)
Quarter: 2016Q4

REPORT INFORMATION
  Report Type: Spontaneous
  Country: AT (occurrence: AT)
  Receive Date: 20161027
  Receipt Date: 20161027
  Transmission Date: 20170207
  Serious: Yes (Other)
  Sender: FDA-Public Use
  Company Number: AT-TEVA-704705ISR

PATIENT
  Age: 6 Year
  Sex: Male
  Weight: 26.05 kg

DRUGS (1)
  1. ACICLOBENE [Suspect]
     Active Substance: ACYCLOVIR
     Indication: PROPHYLAXIS
     Dosage: 750 MILLIGRAM DAILY;
     Route: 042
     Dates: start: 20160921, end: 20160922

REACTIONS (2)
  - Erythema [None]
  - Blister [Recovering/Resolving]

NARRATIVE: CASE EVENT DATE: 20160922
